FAERS Safety Report 21627237 (Version 1)
Quarter: 2022Q4

REPORT INFORMATION
  Report Type: Spontaneous
  Country: JP (occurrence: JP)
  Receive Date: 20221122
  Receipt Date: 20221122
  Transmission Date: 20230113
  Serious: Yes (Other)
  Sender: FDA-Public Use
  Company Number: JP-ELI_LILLY_AND_COMPANY-JP202211008162

PATIENT
  Age: 48 Year
  Sex: Male

DRUGS (2)
  1. CYRAMZA [Suspect]
     Active Substance: RAMUCIRUMAB
     Indication: Non-small cell lung cancer
     Route: 042
  2. ERLOTINIB HYDROCHLORIDE [Concomitant]
     Active Substance: ERLOTINIB HYDROCHLORIDE
     Indication: Non-small cell lung cancer

REACTIONS (1)
  - Lung disorder [Unknown]
